FAERS Safety Report 4803130-5 (Version None)
Quarter: 2005Q4

REPORT INFORMATION
  Report Type: 
  Country: None (occurrence: None)
  Receive Date: 20051019
  Receipt Date: 20051010
  Transmission Date: 20060501
  Serious: Yes (Other)
  Sender: FDA-Public Use
  Company Number: PHBS2005BE14929

PATIENT
  Age: 65 Year
  Sex: Male

DRUGS (4)
  1. SANDOSTATIN LAR [Suspect]
     Indication: POST PROCEDURAL DIARRHOEA
     Dosage: 20 MG, ONCE/SINGLE
     Route: 030
     Dates: start: 20050930, end: 20050930
  2. FOLFOX-4 [Concomitant]
     Indication: COLON CANCER STAGE IV
     Dosage: EVERY 12 DAYS
  3. ZOFRAN [Concomitant]
     Dosage: UNK, PRN
  4. LITICAN [Concomitant]
     Dosage: UNK, PRN

REACTIONS (2)
  - POLYDIPSIA [None]
  - POLYURIA [None]
